FAERS Safety Report 6100017-5 (Version None)
Quarter: 2009Q1

REPORT INFORMATION
  Report Type: 
  Country: None (occurrence: None)
  Receive Date: 20090303
  Receipt Date: 20090226
  Transmission Date: 20090719
  Serious: Yes (Death, Congenital Anomaly)
  Sender: FDA-Public Use
  Company Number: B0532833A

PATIENT
  Age: 0 Year
  Weight: 1.2 kg

DRUGS (6)
  1. COMBIVIR [Suspect]
     Indication: DRUG USE FOR UNKNOWN INDICATION
     Dates: start: 20040428
  2. EFAVIRENZ [Suspect]
     Indication: HIV INFECTION
     Dates: start: 20050101, end: 20060925
  3. SAQUINAVIR [Suspect]
     Indication: DRUG USE FOR UNKNOWN INDICATION
     Dosage: 300MG PER DAY
     Dates: start: 20060925
  4. RITONAVIR [Suspect]
     Indication: DRUG USE FOR UNKNOWN INDICATION
     Dates: start: 20060525
  5. VALGANCICLOVIR HCL [Suspect]
     Dosage: 900MG PER DAY
     Dates: start: 20040101, end: 20060925
  6. COTRIMOXAZOLE [Concomitant]
     Indication: DRUG USE FOR UNKNOWN INDICATION

REACTIONS (19)
  - ANAL ATRESIA [None]
  - ANAL STENOSIS [None]
  - BACTERIAL SEPSIS [None]
  - CONGENITAL ANOMALY [None]
  - CONGENITAL CENTRAL NERVOUS SYSTEM ANOMALY [None]
  - DEFORMITY THORAX [None]
  - DRUG EXPOSURE DURING PREGNANCY [None]
  - DYSMORPHISM [None]
  - FOOT DEFORMITY [None]
  - HEAD DEFORMITY [None]
  - LIMB MALFORMATION [None]
  - MUSCULOSKELETAL DEFORMITY [None]
  - NEURAL TUBE DEFECT [None]
  - ORGAN FAILURE [None]
  - RENAL APLASIA [None]
  - RESPIRATORY FAILURE [None]
  - SPINE MALFORMATION [None]
  - SYSTEMIC INFLAMMATORY RESPONSE SYNDROME [None]
  - UTERINE DISORDER [None]
